FAERS Safety Report 24281097 (Version 1)
Quarter: 2024Q3

REPORT INFORMATION
  Report Type: Spontaneous
  Country: TR (occurrence: TR)
  Receive Date: 20240904
  Receipt Date: 20240904
  Transmission Date: 20241017
  Serious: Yes (Other)
  Sender: PERRIGO
  Company Number: TR-PERRIGO-24TR007890

PATIENT
  Sex: Female

DRUGS (1)
  1. ELLA [Suspect]
     Active Substance: ULIPRISTAL ACETATE
     Indication: Post coital contraception
     Dosage: 1 DOSAGE FORM, SINGLE
     Route: 048
     Dates: start: 20240722, end: 20240722

REACTIONS (2)
  - Abortion spontaneous [Recovered/Resolved]
  - Pregnancy after post coital contraception [Recovered/Resolved]

NARRATIVE: CASE EVENT DATE: 20240819
